FAERS Safety Report 15624907 (Version 1)
Quarter: 2018Q4

REPORT INFORMATION
  Report Type: Spontaneous
  Country: US (occurrence: US)
  Receive Date: 20181116
  Receipt Date: 20181116
  Transmission Date: 20190205
  Serious: Yes (Other)
  Sender: FDA-Public Use
  Company Number: US-ASTRAZENECA-2018SF47073

PATIENT
  Age: 20 Year
  Sex: Female
  Weight: 149.7 kg

DRUGS (30)
  1. MS CONTIN [Concomitant]
     Active Substance: MORPHINE SULFATE
  2. BACTRIM [Concomitant]
     Active Substance: SULFAMETHOXAZOLE\TRIMETHOPRIM
  3. LANSOPRAZOLE. [Suspect]
     Active Substance: LANSOPRAZOLE
     Indication: DYSPEPSIA
     Route: 065
     Dates: start: 2008, end: 2015
  4. MORPHIN [Concomitant]
     Active Substance: MORPHINE
     Indication: PULMONARY EMBOLISM
     Route: 048
     Dates: start: 20150723, end: 20160223
  5. HCTZ [Concomitant]
     Active Substance: HYDROCHLOROTHIAZIDE
  6. GABAPENTIN. [Concomitant]
     Active Substance: GABAPENTIN
     Indication: NEUROPATHY PERIPHERAL
     Route: 048
     Dates: start: 20131110
  7. GABAPENTIN. [Concomitant]
     Active Substance: GABAPENTIN
     Indication: NEUROPATHY PERIPHERAL
     Route: 048
     Dates: start: 20150623, end: 20150723
  8. VENLAFAXINE [Concomitant]
     Active Substance: VENLAFAXINE HYDROCHLORIDE
     Indication: DEPRESSION
  9. FAMOTIDINE. [Concomitant]
     Active Substance: FAMOTIDINE
     Route: 048
     Dates: start: 20151102, end: 20160116
  10. SOMA [Concomitant]
     Active Substance: CARISOPRODOL
  11. AZITHROMYCIN ANHYDROUS. [Concomitant]
     Active Substance: AZITHROMYCIN ANHYDROUS
  12. LISINOPRIL. [Concomitant]
     Active Substance: LISINOPRIL
  13. OXYBUTIN [Concomitant]
     Active Substance: OXYBUTYNIN
     Indication: BLADDER DISORDER
     Route: 048
     Dates: start: 20150714, end: 20160215
  14. ABILIFY [Concomitant]
     Active Substance: ARIPIPRAZOLE
     Indication: DEPRESSION
  15. NORVASC [Concomitant]
     Active Substance: AMLODIPINE BESYLATE
  16. PRAVASTATIN. [Concomitant]
     Active Substance: PRAVASTATIN
  17. PRILOSEC OTC [Suspect]
     Active Substance: OMEPRAZOLE MAGNESIUM
     Indication: DYSPEPSIA
     Route: 048
  18. FLOVENT [Concomitant]
     Active Substance: FLUTICASONE PROPIONATE
     Indication: CHRONIC OBSTRUCTIVE PULMONARY DISEASE
  19. ASA [Concomitant]
     Active Substance: ASPIRIN
  20. WARFARIN [Concomitant]
     Active Substance: WARFARIN
  21. NEXIUM 24HR [Suspect]
     Active Substance: ESOMEPRAZOLE MAGNESIUM
     Indication: DYSPEPSIA
     Route: 048
  22. LANSOPRAZOLE. [Suspect]
     Active Substance: LANSOPRAZOLE
     Indication: DYSPEPSIA
     Route: 048
     Dates: start: 20131026
  23. METOPROLOL. [Concomitant]
     Active Substance: METOPROLOL
     Indication: BLOOD PRESSURE MEASUREMENT
  24. ALBUTEROL. [Concomitant]
     Active Substance: ALBUTEROL
  25. NORTRIPTYLINE [Concomitant]
     Active Substance: NORTRIPTYLINE
     Route: 048
     Dates: start: 20131109
  26. HYDROMORPHONE [Concomitant]
     Active Substance: HYDROMORPHONE
  27. LODOPIN [Concomitant]
     Active Substance: ZOTEPINE
     Indication: BLOOD PRESSURE MEASUREMENT
  28. POTASSIUM [Concomitant]
     Active Substance: POTASSIUM
     Indication: BLOOD PRESSURE MEASUREMENT
  29. TUMS [Concomitant]
     Active Substance: CALCIUM CARBONATE
     Dates: start: 1979, end: 1982
  30. COUMADIN [Concomitant]
     Active Substance: WARFARIN SODIUM

REACTIONS (3)
  - Renal failure [Not Recovered/Not Resolved]
  - Acute kidney injury [Unknown]
  - Chronic kidney disease [Unknown]

NARRATIVE: CASE EVENT DATE: 1984
